FAERS Safety Report 13716856 (Version 1)
Quarter: 2017Q3

REPORT INFORMATION
  Report Type: Spontaneous
  Country: US (occurrence: US)
  Receive Date: 20170703
  Receipt Date: 20170703
  Transmission Date: 20171127
  Serious: Yes (Disabling)
  Sender: FDA-Public Use
  Company Number: None

PATIENT
  Age: 45 Year
  Sex: Female
  Weight: 47.25 kg

DRUGS (5)
  1. CLONAZEPAM. [Suspect]
     Active Substance: CLONAZEPAM
     Indication: POST-TRAUMATIC STRESS DISORDER
     Dosage: ?          OTHER STRENGTH:MG;?
     Route: 048
  2. CLONAZEPAM. [Suspect]
     Active Substance: CLONAZEPAM
     Indication: ANXIETY
     Dosage: ?          OTHER STRENGTH:MG;?
     Route: 048
  3. TRAZODONE [Concomitant]
     Active Substance: TRAZODONE HYDROCHLORIDE
  4. BUSPAR [Concomitant]
     Active Substance: BUSPIRONE HYDROCHLORIDE
  5. CLONAZEPAM. [Suspect]
     Active Substance: CLONAZEPAM
     Indication: PANIC DISORDER
     Dosage: ?          OTHER STRENGTH:MG;?
     Route: 048

REACTIONS (12)
  - Anxiety [None]
  - Feeling hot [None]
  - Panic reaction [None]
  - Insomnia [None]
  - Amnesia [None]
  - Withdrawal syndrome [None]
  - Confusional state [None]
  - Dependence [None]
  - Head discomfort [None]
  - Hyperhidrosis [None]
  - Fear [None]
  - Tremor [None]

NARRATIVE: CASE EVENT DATE: 20170529
